FAERS Safety Report 10161713 (Version 2)
Quarter: 2014Q2

REPORT INFORMATION
  Report Type: Spontaneous
  Country: GB (occurrence: None)
  Receive Date: 20140507
  Receipt Date: 20140521
  Transmission Date: 20141212
  Serious: Yes (Other)
  Sender: FDA-Public Use
  Company Number: AUR-APL-2014-05218

PATIENT
  Age: 80 Year
  Sex: Female
  Weight: 95.25 kg

DRUGS (15)
  1. TRAMADOL [Suspect]
     Indication: PRODUCT USED FOR UNKNOWN INDICATION
     Dates: start: 20140422
  2. ALLOPURINOL [Concomitant]
  3. ALVERINE CITRATE [Concomitant]
  4. CO-CODAMOL (PANADEINE CO) [Concomitant]
  5. DICLOFENAC SODIUM [Concomitant]
  6. DIHYDROCODEINE [Concomitant]
  7. INDAPAMIDE [Concomitant]
  8. LEVOTHYROXINE [Concomitant]
  9. LISINOPRIL [Concomitant]
  10. LOPERAMIDE [Concomitant]
  11. METFORMIN [Concomitant]
  12. OMEPRAZOLE [Concomitant]
  13. PHOLCODINE [Concomitant]
  14. ROSUVASTATIN [Concomitant]
  15. SECURON (VERAPAMIL HYDROCHLORIDE) [Concomitant]

REACTIONS (1)
  - Swelling face [None]
